FAERS Safety Report 11224186 (Version 3)
Quarter: 2017Q1

REPORT INFORMATION
  Report Type: Report from Study
  Country: BR (occurrence: BR)
  Receive Date: 20150629
  Receipt Date: 20170215
  Transmission Date: 20170428
  Serious: Yes (Other)
  Sender: FDA-Public Use
  Company Number: BR-ROCHE-1459434

PATIENT
  Age: 47 Year
  Sex: Female
  Weight: 71 kg

DRUGS (3)
  1. ARAVA [Concomitant]
     Active Substance: LEFLUNOMIDE
     Indication: RHEUMATOID ARTHRITIS
  2. ACTEMRA [Suspect]
     Active Substance: TOCILIZUMAB
     Indication: RHEUMATOID ARTHRITIS
     Dosage: LAST INFUSION WAS ON 09/MAR/2015. FREQUENCY- MONTHLY
     Route: 042
     Dates: start: 20140108, end: 20170101
  3. DEPURA [Concomitant]
     Active Substance: CHOLECALCIFEROL

REACTIONS (10)
  - Cough [Not Recovered/Not Resolved]
  - Influenza [Recovering/Resolving]
  - Rash [Not Recovered/Not Resolved]
  - Tuberculosis [Not Recovered/Not Resolved]
  - Pain [Not Recovered/Not Resolved]
  - Weight decreased [Unknown]
  - Activities of daily living impaired [Not Recovered/Not Resolved]
  - Interstitial lung disease [Not Recovered/Not Resolved]
  - Hyperaesthesia [Not Recovered/Not Resolved]
  - Swelling [Unknown]

NARRATIVE: CASE EVENT DATE: 20140830
